FAERS Safety Report 6893582-1 (Version None)
Quarter: 2010Q3

REPORT INFORMATION
  Report Type: 
  Country: None (occurrence: None)
  Receive Date: 20100731
  Receipt Date: 20091020
  Transmission Date: 20110219
  Serious: No
  Sender: FDA-Public Use
  Company Number: US-PFIZER INC-2009261285

PATIENT
  Sex: Female
  Weight: 65.3 kg

DRUGS (8)
  1. LIPITOR [Suspect]
     Indication: BLOOD CHOLESTEROL INCREASED
     Dosage: 20 MG, 1X/DAY
     Dates: start: 20090820
  2. LISINOPRIL [Concomitant]
     Dosage: UNK
  3. ATENOLOL [Concomitant]
     Dosage: UNK
  4. XANAX [Concomitant]
     Dosage: UNK
  5. HYDROCODONE [Concomitant]
     Dosage: UNK
  6. ESTRADIOL [Concomitant]
  7. VICODIN [Concomitant]
  8. OMEPRAZOLE [Concomitant]

REACTIONS (4)
  - DYSPHONIA [None]
  - HEADACHE [None]
  - NASOPHARYNGITIS [None]
  - NIGHT SWEATS [None]
